FAERS Safety Report 25842588 (Version 1)
Quarter: 2025Q3

REPORT INFORMATION
  Report Type: Spontaneous
  Country: US (occurrence: US)
  Receive Date: 20250924
  Receipt Date: 20250924
  Transmission Date: 20251020
  Serious: Yes (Other)
  Sender: Kenvue
  Company Number: US-KENVUE-20250908016

PATIENT

DRUGS (1)
  1. TYLENOL PRECISE PAIN RELIEVING [Suspect]
     Active Substance: LIDOCAINE
     Indication: Product used for unknown indication
     Route: 065

REACTIONS (1)
  - Autism spectrum disorder [Not Recovered/Not Resolved]
